FAERS Safety Report 23932199 (Version 11)
Quarter: 2025Q4

REPORT INFORMATION
  Report Type: Spontaneous
  Country: CA (occurrence: CA)
  Receive Date: 20240603
  Receipt Date: 20251020
  Transmission Date: 20260117
  Serious: Yes (Other)
  Sender: CELLTRION
  Company Number: CA-PFIZER INC-202400175331

PATIENT

DRUGS (25)
  1. INFLECTRA [Suspect]
     Active Substance: INFLIXIMAB-DYYB
     Indication: Colitis ulcerative
     Dosage: 900 MG, 0, 2, 6, THEN EVERY 4 WEEKS
     Route: 042
     Dates: start: 20240425
  2. INFLECTRA [Suspect]
     Active Substance: INFLIXIMAB-DYYB
     Dosage: 900 MG, 0, 2, 6, THEN EVERY 4 WEEKS
     Route: 042
     Dates: start: 20240425
  3. INFLECTRA [Suspect]
     Active Substance: INFLIXIMAB-DYYB
     Dosage: 900 MG, 0, 2, 6, THEN EVERY 4 WEEKS
     Route: 042
     Dates: start: 20240425
  4. INFLECTRA [Suspect]
     Active Substance: INFLIXIMAB-DYYB
     Dosage: 900 MG, 0, 2, 6, THEN EVERY 4 WEEKS
     Route: 042
     Dates: start: 20240523
  5. INFLECTRA [Suspect]
     Active Substance: INFLIXIMAB-DYYB
     Dosage: 900 MG, 0, 2, 6, THEN EVERY 4 WEEKS
     Route: 042
     Dates: start: 20240718
  6. INFLECTRA [Suspect]
     Active Substance: INFLIXIMAB-DYYB
     Dosage: 900 MG, EVERY 4 WEEKS (PRESCRIBED 0, 2, 6, THEN EVERY 4 WEEKS)
     Route: 042
     Dates: start: 20240816
  7. INFLECTRA [Suspect]
     Active Substance: INFLIXIMAB-DYYB
     Dosage: 900 MG, EVERY 4 WEEKS (PRESCRIBED 0, 2, 6, THEN EVERY 4 WEEKS)
     Route: 042
     Dates: start: 20240816
  8. INFLECTRA [Suspect]
     Active Substance: INFLIXIMAB-DYYB
     Dosage: 900 MG, AFTER 3 WEEKS AND 6 DAYS (PRESCRIBED 0, 2, 6, THEN EVERY 4 WEEKS)
     Route: 042
     Dates: start: 20240912
  9. INFLECTRA [Suspect]
     Active Substance: INFLIXIMAB-DYYB
     Dosage: 900 MG, 0, 2, 6, THEN EVERY 4 WEEKS
     Route: 042
     Dates: start: 20241010
  10. INFLECTRA [Suspect]
     Active Substance: INFLIXIMAB-DYYB
     Dosage: 900 MG, 0, 2, 6, THEN EVERY 4 WEEKS
     Route: 042
     Dates: start: 20241107
  11. INFLECTRA [Suspect]
     Active Substance: INFLIXIMAB-DYYB
     Dosage: 900 MG, 4 WEEKS (PRESCRIBED 0, 2, 6, THEN EVERY 4 WEEKS)
     Route: 042
     Dates: start: 20241205
  12. INFLECTRA [Suspect]
     Active Substance: INFLIXIMAB-DYYB
     Dosage: 900 MG, 4 WEEKS (PRESCRIBED 0, 2, 6, THEN EVERY 4 WEEKS)
     Route: 042
     Dates: start: 20241205
  13. INFLECTRA [Suspect]
     Active Substance: INFLIXIMAB-DYYB
     Dosage: 900 MG, 0, 2, 6, THEN EVERY 4 WEEKS
     Route: 042
     Dates: start: 20250426
  14. INFLECTRA [Suspect]
     Active Substance: INFLIXIMAB-DYYB
     Dosage: 900 MG, 3 WEEKS AND 5 DAYS (PRESCRIBED 0, 2, 6, THEN EVERY 4 WEEKS)
     Route: 042
     Dates: start: 20250522
  15. INFLECTRA [Suspect]
     Active Substance: INFLIXIMAB-DYYB
     Dosage: 900 MG, 3 WEEKS AND 5 DAYS (PRESCRIBED 0, 2, 6, THEN EVERY 4 WEEKS)
     Route: 042
     Dates: start: 20250522
  16. INFLECTRA [Suspect]
     Active Substance: INFLIXIMAB-DYYB
     Dosage: 900 MG, 4 WEEKS (PRESCRIBED 0, 2, 6, THEN EVERY 4 WEEKS)
     Route: 042
     Dates: start: 20250619
  17. INFLECTRA [Suspect]
     Active Substance: INFLIXIMAB-DYYB
     Dosage: 900 MG, 0, 2, 6, THEN EVERY 4 WEEKS
     Route: 042
     Dates: start: 20250717
  18. INFLECTRA [Suspect]
     Active Substance: INFLIXIMAB-DYYB
     Dosage: 900 MG, 0, 2, 6, THEN EVERY 4 WEEKS
     Route: 042
     Dates: start: 20250717
  19. INFLECTRA [Suspect]
     Active Substance: INFLIXIMAB-DYYB
     Dosage: 900 MG, 0, 2, 6, THEN EVERY 4 WEEKS
     Route: 042
     Dates: start: 20250814
  20. INFLECTRA [Suspect]
     Active Substance: INFLIXIMAB-DYYB
     Dosage: 900 MG, 4 WEEKS (0, 2, 6 WEEKS, THEN EVERY 4 WEEKS)
     Route: 042
     Dates: start: 20250911
  21. INFLECTRA [Suspect]
     Active Substance: INFLIXIMAB-DYYB
     Dosage: 900 MG, 0, 2, 6 WEEKS, THEN EVERY 4 WEEKS)
     Route: 042
     Dates: start: 20251009
  22. ALESSE 28 [Concomitant]
     Active Substance: ETHINYL ESTRADIOL\LEVONORGESTREL
     Dosage: UNK
  23. PREDNISONE [Concomitant]
     Active Substance: PREDNISONE
     Dosage: UNK
  24. MESALAMINE [Concomitant]
     Active Substance: MESALAMINE
     Dosage: UNK
  25. WELLBUTRIN [Concomitant]
     Active Substance: BUPROPION HYDROCHLORIDE
     Dosage: UNK

REACTIONS (6)
  - Gastrointestinal pain [Unknown]
  - Condition aggravated [Not Recovered/Not Resolved]
  - Poor venous access [Unknown]
  - Stress [Unknown]
  - Headache [Unknown]
  - Off label use [Unknown]

NARRATIVE: CASE EVENT DATE: 20240425
